FAERS Safety Report 4713466-4 (Version None)
Quarter: 2005Q3

REPORT INFORMATION
  Report Type: 
  Country: None (occurrence: None)
  Receive Date: 20050707
  Receipt Date: 20050621
  Transmission Date: 20060218
  Serious: Yes (Life-Threatening, Hospitalization)
  Sender: FDA-Public Use
  Company Number: PAGL/05/11/LIT

PATIENT
  Age: 66 Year
  Sex: Female

DRUGS (1)
  1. PANGLOBULIN [Suspect]
     Indication: GUILLAIN-BARRE SYNDROME
     Dosage: O.A.D., I.V.
     Route: 042

REACTIONS (13)
  - AREFLEXIA [None]
  - AUTONOMIC NERVOUS SYSTEM IMBALANCE [None]
  - BLINDNESS CORTICAL [None]
  - BRAIN OEDEMA [None]
  - CEREBRAL HAEMORRHAGE [None]
  - DYSPHAGIA [None]
  - DYSPNOEA [None]
  - HYPERTENSION [None]
  - ISCHAEMIC STROKE [None]
  - QUADRIPLEGIA [None]
  - REVERSIBLE POSTERIOR LEUKOENCEPHALOPATHY SYNDROME [None]
  - SUBARACHNOID HAEMORRHAGE [None]
  - VASOCONSTRICTION [None]
